FAERS Safety Report 22065250 (Version 1)
Quarter: 2023Q1

REPORT INFORMATION
  Report Type: Spontaneous
  Country: US (occurrence: None)
  Receive Date: 20230303
  Receipt Date: 20230303
  Transmission Date: 20230418
  Serious: No
  Sender: FDA-Public Use
  Company Number: None

PATIENT
  Age: 21 Year
  Sex: Female

DRUGS (1)
  1. HUMIRA [Suspect]
     Active Substance: ADALIMUMAB
     Indication: Sarcoidosis
     Dosage: OTHER QUANTITY : 40MG/0.4ML;?OTHER FREQUENCY : EVERY 14 DAYS;?
     Route: 058
     Dates: start: 20230117

REACTIONS (3)
  - Fatigue [None]
  - Restless legs syndrome [None]
  - Hypersomnia [None]

NARRATIVE: CASE EVENT DATE: 20230301
